FAERS Safety Report 9476445 (Version 5)
Quarter: 2014Q4

REPORT INFORMATION
  Report Type: Spontaneous
  Country: CA (occurrence: CA)
  Receive Date: 20130826
  Receipt Date: 20141203
  Transmission Date: 20150529
  Serious: Yes (Hospitalization, Other)
  Sender: FDA-Public Use
  Company Number: CA-PFIZER INC-2013244213

PATIENT
  Age: 68 Year
  Sex: Male
  Weight: 73.3 kg

DRUGS (26)
  1. PHENYTOIN SODIUM. [Interacting]
     Active Substance: PHENYTOIN SODIUM
     Dosage: 300 MG, 1 EVERY ONE DAY
  2. CARBAMAZEPINE. [Interacting]
     Active Substance: CARBAMAZEPINE
     Dosage: 400 MG, 2X/DAY
  3. REPAGLINIDE. [Concomitant]
     Active Substance: REPAGLINIDE
     Dosage: 2 MG, 3X/DAY
  4. PANTOPRAZOLE [Concomitant]
     Active Substance: PANTOPRAZOLE SODIUM
     Dosage: 40MG, DAILY
  5. EZETROL [Concomitant]
     Active Substance: EZETIMIBE
     Indication: MYOCARDIAL INFARCTION
     Dosage: 10MG, DAILY
  6. DORZOLAMIDE HYDROCHLORIDE/TIMOLOL MALEATE [Concomitant]
     Dosage: (20 AND 5 MG/ML) 1 DROP IN EACH EYE DAILY
     Route: 047
  7. PHENYTOIN SODIUM. [Interacting]
     Active Substance: PHENYTOIN SODIUM
     Dosage: 500 MG, 1 EVERY 1 DAY
  8. RAPAMUNE [Interacting]
     Active Substance: SIROLIMUS
     Indication: IMMUNOSUPPRESSANT DRUG THERAPY
     Dosage: 2 MG, DAILY
  9. RAPAMUNE [Interacting]
     Active Substance: SIROLIMUS
     Dosage: 8 MG, DAILY
  10. CLOPIDOGREL [Concomitant]
     Active Substance: CLOPIDOGREL BISULFATE
     Indication: MYOCARDIAL INFARCTION
     Dosage: 75 MG, DAILY
  11. PHENYTOIN SODIUM. [Interacting]
     Active Substance: PHENYTOIN SODIUM
     Dosage: 400 MG, 1 EVERY ONE DAY
  12. PHENYTOIN SODIUM. [Interacting]
     Active Substance: PHENYTOIN SODIUM
     Dosage: 500 MG, UNK
     Route: 042
  13. RAPAMUNE [Interacting]
     Active Substance: SIROLIMUS
     Dosage: 4 MG, 1X/DAY
  14. LEVOTHYROXINE [Concomitant]
     Active Substance: LEVOTHYROXINE
     Dosage: 50 ?G, DAILY
  15. LEVETIRACETAM. [Concomitant]
     Active Substance: LEVETIRACETAM
  16. PHENYTOIN SODIUM. [Interacting]
     Active Substance: PHENYTOIN SODIUM
     Dosage: 100 MG,  Q8H
     Route: 042
  17. ACETYLSALICYLIC ACID [Concomitant]
     Active Substance: ASPIRIN
     Dosage: 81MG, DAILY
  18. METOPROLOL [Concomitant]
     Active Substance: METOPROLOL
     Indication: MYOCARDIAL INFARCTION
     Dosage: 25 MG, 2X/DAY
  19. CALCIUM CARBONATE. [Concomitant]
     Active Substance: CALCIUM CARBONATE
     Dosage: 1250 MG, DAILY
  20. PHENYTOIN SODIUM. [Suspect]
     Active Substance: PHENYTOIN SODIUM
     Indication: GENERALISED TONIC-CLONIC SEIZURE
     Dosage: 500 MG,  LOADING DOSE
     Route: 042
  21. RAPAMUNE [Interacting]
     Active Substance: SIROLIMUS
     Dosage: 3 MG, DAILY
  22. CARBAMAZEPINE. [Interacting]
     Active Substance: CARBAMAZEPINE
     Dosage: TAPERED BY 50 % EVERY 4 DAYS
  23. INSULIN [Concomitant]
     Active Substance: INSULIN NOS
     Dosage: 4-8 UNITS AT BEDTIME
  24. PHENYTOIN SODIUM. [Interacting]
     Active Substance: PHENYTOIN SODIUM
     Dosage: 350 MG, 1 EVERY ONE DAY
  25. CARBAMAZEPINE. [Interacting]
     Active Substance: CARBAMAZEPINE
     Indication: GENERALISED TONIC-CLONIC SEIZURE
     Dosage: 200 MG, 2X/DAY
  26. VITAMIN D [Concomitant]
     Active Substance: CHOLECALCIFEROL
     Dosage: 400 UNITS, DAILY

REACTIONS (11)
  - Gamma-glutamyltransferase increased [Recovered/Resolved]
  - Ataxia [Unknown]
  - Product use issue [Unknown]
  - Drug interaction [Recovered/Resolved]
  - Generalised tonic-clonic seizure [Unknown]
  - Anticonvulsant drug level increased [Unknown]
  - Drug ineffective [Unknown]
  - Drug level decreased [Recovered/Resolved]
  - Somnolence [Unknown]
  - Confusional state [Unknown]
  - Memory impairment [Unknown]
